FAERS Safety Report 8824615 (Version 1)
Quarter: 2012Q4

REPORT INFORMATION
  Report Type: 
  Country: MX (occurrence: MX)
  Receive Date: 20121004
  Receipt Date: 20121004
  Transmission Date: 20130627
  Serious: Yes (Other)
  Sender: FDA-Public Use
  Company Number: PHHY2012MX086241

PATIENT
  Age: 74 Year
  Sex: Female

DRUGS (2)
  1. CO-DIOVAN [Suspect]
     Indication: HYPERTENSION
     Dosage: 1 DF, daily (80/ 12.5 mg)
     Dates: end: 20120920
  2. ASPIRINA [Concomitant]
     Dosage: 1 DF, daily

REACTIONS (3)
  - Hypoxia [Unknown]
  - Dysphonia [Unknown]
  - Blood pressure increased [Unknown]
